FAERS Safety Report 5636213-0 (Version None)
Quarter: 2008Q1

REPORT INFORMATION
  Report Type: 
  Country: None (occurrence: None)
  Receive Date: 20080225
  Receipt Date: 20080218
  Transmission Date: 20080703
  Serious: Yes (Death, Hospitalization, Other)
  Sender: FDA-Public Use
  Company Number: US-ELI_LILLY_AND_COMPANY-US200802004096

PATIENT
  Sex: Male
  Weight: 99.773 kg

DRUGS (5)
  1. ZYPREXA [Suspect]
     Indication: POST-TRAUMATIC STRESS DISORDER
     Dosage: 10 MG, 3/D
     Dates: start: 20040101
  2. PEPCID [Concomitant]
  3. ABILIFY [Concomitant]
  4. DEPAKOTE [Concomitant]
  5. MOTRIN [Concomitant]

REACTIONS (14)
  - BLOOD PRESSURE INCREASED [None]
  - DEEP VEIN THROMBOSIS [None]
  - DEHYDRATION [None]
  - DYSPNOEA [None]
  - HOSPITALISATION [None]
  - INCREASED APPETITE [None]
  - OEDEMA [None]
  - PALPITATIONS [None]
  - PULMONARY EMBOLISM [None]
  - RENAL FAILURE [None]
  - SUDDEN DEATH [None]
  - SWEAT DISCOLOURATION [None]
  - THIRST [None]
  - WEIGHT INCREASED [None]
